FAERS Safety Report 9947160 (Version 1)
Quarter: 2014Q1

REPORT INFORMATION
  Report Type: Report from Study
  Country: US (occurrence: US)
  Receive Date: 20140303
  Receipt Date: 20140303
  Transmission Date: 20141002
  Serious: No
  Sender: FDA-Public Use
  Company Number: US-ABBVIE-13P-163-1060196-00

PATIENT
  Age: 38 Year
  Sex: Female
  Weight: 74.46 kg

DRUGS (3)
  1. HUMIRA [Suspect]
     Indication: RHEUMATOID ARTHRITIS
     Dates: start: 201108
  2. PREDNISONE [Concomitant]
     Indication: PRODUCT USED FOR UNKNOWN INDICATION
     Dates: end: 201303
  3. PREDNISONE [Concomitant]
     Dates: start: 201303

REACTIONS (10)
  - Skin plaque [Not Recovered/Not Resolved]
  - Nasopharyngitis [Recovered/Resolved]
  - Rash papular [Recovering/Resolving]
  - Papule [Not Recovered/Not Resolved]
  - Cough [Not Recovered/Not Resolved]
  - Non-cardiac chest pain [Recovering/Resolving]
  - Headache [Recovered/Resolved]
  - Abdominal pain upper [Recovered/Resolved]
  - Flatulence [Recovered/Resolved]
  - Back pain [Recovering/Resolving]
